FAERS Safety Report 10103202 (Version 1)
Quarter: 2014Q2

REPORT INFORMATION
  Report Type: Spontaneous
  Country: US (occurrence: US)
  Receive Date: 20140424
  Receipt Date: 20140424
  Transmission Date: 20141212
  Serious: Yes (Other)
  Sender: FDA-Public Use
  Company Number: US-BRISTOL-MYERS SQUIBB COMPANY-20181582

PATIENT
  Age: 85 Year
  Sex: Female

DRUGS (2)
  1. ELIQUIS [Suspect]
     Route: 048
     Dates: start: 20140203, end: 20140203
  2. WARFARIN SODIUM [Concomitant]
     Dates: end: 20140202

REACTIONS (1)
  - Anaphylactic reaction [Recovered/Resolved]
